FAERS Safety Report 8603591 (Version 2)
Quarter: 2012Q4

REPORT INFORMATION
  Report Type: Report from Study
  Country: ES (occurrence: ES)
  Receive Date: 20120607
  Receipt Date: 20121009
  Transmission Date: 20130627
  Serious: Yes (Hospitalization, Other)
  Sender: FDA-Public Use
  Company Number: ES-BAXTER-2012BAX007066

PATIENT
  Age: 67 Year
  Sex: Male
  Weight: 80 kg

DRUGS (27)
  1. PARACETAMOL [Concomitant]
     Dates: start: 20120420, end: 20120422
  2. OXYGEN [Concomitant]
     Indication: BRONCHOSPASM
     Route: 065
     Dates: start: 20120420, end: 20120503
  3. DEXCHLORPHENIRAMINE MALEATE [Concomitant]
     Indication: DRUG USE FOR UNKNOWN INDICATION
     Route: 065
     Dates: start: 20120412
  4. HYDROCORTISONE SODIUM PHOSPHATE [Concomitant]
     Indication: DRUG USE FOR UNKNOWN INDICATION
     Route: 065
     Dates: start: 20120412, end: 20120412
  5. ONDANSETRON [Concomitant]
     Indication: DRUG USE FOR UNKNOWN INDICATION
     Route: 065
     Dates: start: 20120420, end: 20120420
  6. GENOXAL [Suspect]
     Indication: DIFFUSE LARGE B-CELL LYMPHOMA
     Route: 042
     Dates: start: 20120412
  7. RITUXIMAB [Suspect]
     Indication: DIFFUSE LARGE B-CELL LYMPHOMA
     Route: 042
     Dates: start: 20120412
  8. DOXORUBICIN [Suspect]
     Indication: DIFFUSE LARGE B-CELL LYMPHOMA
     Route: 042
     Dates: start: 20120412
  9. PREDNISONE [Suspect]
     Indication: DIFFUSE LARGE B-CELL LYMPHOMA
     Route: 048
     Dates: start: 20120411
  10. PREDNISONE [Suspect]
     Route: 048
     Dates: start: 20120412
  11. VINCRISTINE [Suspect]
     Indication: DIFFUSE LARGE B-CELL LYMPHOMA
     Route: 042
     Dates: start: 20120412
  12. INSULIN [Concomitant]
     Indication: TYPE II DIABETES MELLITUS
     Route: 065
  13. ASPIRIN [Concomitant]
     Indication: ARTERIOPATHY
     Route: 065
  14. ENALAPRIL MALEATE [Concomitant]
     Indication: HYPERTENSION
     Route: 065
  15. PREGABALIN [Concomitant]
     Indication: DIABETIC NEUROPATHY
     Route: 065
  16. CLOPERASTINE [Concomitant]
     Indication: COUGH
     Route: 065
     Dates: start: 20120417, end: 20120420
  17. FILGRASTIM [Concomitant]
     Indication: FEBRILE NEUTROPENIA
     Route: 065
     Dates: start: 20120420, end: 20120425
  18. IPRATROPIUM BROMIDE [Concomitant]
     Indication: BRONCHOSPASM
     Route: 065
     Dates: start: 20120423, end: 20120430
  19. SALBUTAMOL [Concomitant]
     Indication: BRONCHOSPASM
     Route: 065
     Dates: start: 20120423, end: 20120503
  20. FUROSEMIDE [Concomitant]
     Indication: EDEMA LOWER LIMB
     Route: 065
     Dates: start: 20120424, end: 20120430
  21. CODEINE PHOSPHATE [Concomitant]
     Indication: COUGH
     Route: 065
     Dates: start: 20120421, end: 20120426
  22. ALLOPURINOL [Concomitant]
     Indication: TUMOR LYSIS SYNDROME
     Route: 065
     Dates: start: 20120420, end: 20120424
  23. OMEPRAZOLE [Concomitant]
     Indication: GASTRIC ULCER PROPHYLAXIS
     Route: 065
     Dates: start: 20120420, end: 20120504
  24. TIOTROPIUM BROMIDE [Concomitant]
     Indication: BRONCHOSPASM
     Route: 065
     Dates: start: 20120425, end: 20120503
  25. PANTOPRAZOLE [Concomitant]
     Indication: GASTRIC ULCER PROPHYLAXIS
     Route: 065
  26. DIAZEPAM [Concomitant]
     Indication: CERVICAL PAIN
     Route: 065
     Dates: start: 20120428, end: 20120428
  27. PARACETAMOL [Concomitant]
     Indication: FEVER
     Route: 065
     Dates: start: 20120412

REACTIONS (2)
  - Pneumonia [Recovered/Resolved]
  - Neutropenia [Unknown]
